FAERS Safety Report 5528701-2 (Version None)
Quarter: 2007Q4

REPORT INFORMATION
  Report Type: 
  Country: None (occurrence: None)
  Receive Date: 20071114
  Receipt Date: 20070817
  Transmission Date: 20080405
  Serious: Yes (Hospitalization)
  Sender: FDA-Public Use
  Company Number: WAES 0708USA03446

PATIENT
  Age: 57 Year
  Sex: Female
  Weight: 52.1637 kg

DRUGS (6)
  1. FOSAMAX PLUS D [Suspect]
     Indication: OSTEOPOROSIS
     Dosage: 70 MG/2800 IU/WKY/PO
     Route: 048
     Dates: start: 20070614, end: 20070621
  2. LIBRIUM [Concomitant]
  3. LIPITOR [Concomitant]
  4. PREMPRO [Concomitant]
  5. TIMOPTIC [Concomitant]
  6. DILTIAZEM HYDROCHLORIDE [Concomitant]

REACTIONS (1)
  - GASTROOESOPHAGEAL REFLUX DISEASE [None]
